FAERS Safety Report 14536771 (Version 1)
Quarter: 2018Q1

REPORT INFORMATION
  Report Type: Spontaneous
  Country: US (occurrence: US)
  Receive Date: 20180215
  Receipt Date: 20180215
  Transmission Date: 20180509
  Serious: Yes (Hospitalization)
  Sender: FDA-Public Use
  Company Number: None

PATIENT
  Age: 86 Year
  Sex: Male
  Weight: 82.8 kg

DRUGS (6)
  1. XARELTO [Suspect]
     Active Substance: RIVAROXABAN
     Indication: ATRIAL FIBRILLATION
     Route: 048
  2. VIAGRA [Concomitant]
     Active Substance: SILDENAFIL CITRATE
  3. FLOMAX [Concomitant]
     Active Substance: TAMSULOSIN HYDROCHLORIDE
  4. ULTRACET [Concomitant]
     Active Substance: ACETAMINOPHEN\TRAMADOL HYDROCHLORIDE
  5. DIGOXIN. [Concomitant]
     Active Substance: DIGOXIN
  6. PRAVACHOL [Concomitant]
     Active Substance: PRAVASTATIN SODIUM

REACTIONS (1)
  - Subdural haematoma [None]

NARRATIVE: CASE EVENT DATE: 20170510
